FAERS Safety Report 6469165-4 (Version None)
Quarter: 2009Q4

REPORT INFORMATION
  Report Type: 
  Country: None (occurrence: None)
  Receive Date: 20091203
  Receipt Date: 20080612
  Transmission Date: 20100525
  Serious: Yes (Other)
  Sender: FDA-Public Use
  Company Number: JP-ELI_LILLY_AND_COMPANY-JP200708001209

PATIENT
  Sex: Female
  Weight: 47 kg

DRUGS (3)
  1. EVISTA [Suspect]
     Indication: OSTEOPOROSIS
     Dosage: 60 MG, DAILY (1/D)
     Route: 048
     Dates: start: 20050630, end: 20070614
  2. ALFAROL [Concomitant]
     Dosage: 0.5 UG, DAILY (1/D)
     Route: 048
     Dates: start: 20050630, end: 20070315
  3. LANSAP [Concomitant]
     Route: 048

REACTIONS (1)
  - PLATELET COUNT DECREASED [None]
